FAERS Safety Report 23058481 (Version 3)
Quarter: 2024Q2

REPORT INFORMATION
  Report Type: Spontaneous
  Country: CA (occurrence: CA)
  Receive Date: 20231012
  Receipt Date: 20240417
  Transmission Date: 20240716
  Serious: Yes (Other)
  Sender: FDA-Public Use
  Company Number: CA-CELLTRION INC.-2023CA018969

PATIENT

DRUGS (24)
  1. YUFLYMA [Suspect]
     Active Substance: ADALIMUMAB-AATY
     Indication: Crohn^s disease
     Dosage: 40 MG , WEEKS-WEEKLY , SUBCUTANEOUS
     Route: 058
     Dates: start: 202307
  2. YUFLYMA [Suspect]
     Active Substance: ADALIMUMAB-AATY
     Dosage: 40 MG , WEEKS-WEEKLY , SUBCUTANEOUS
     Route: 058
     Dates: start: 20230802
  3. YUFLYMA [Suspect]
     Active Substance: ADALIMUMAB-AATY
     Dosage: 40 MILLIGRAM, 1 EVERY 1 WEEKS
     Route: 058
  4. YUFLYMA [Suspect]
     Active Substance: ADALIMUMAB-AATY
     Dosage: 40 MILLIGRAM, 1 EVERY 1 WEEKS
     Route: 058
  5. ACETAMINOPHEN [Concomitant]
     Active Substance: ACETAMINOPHEN
  6. LIPIDIL [Concomitant]
     Active Substance: FENOFIBRATE
  7. PANTOPRAZOLE MAGNESIUM [Concomitant]
     Active Substance: PANTOPRAZOLE MAGNESIUM
  8. MICARDIS [Concomitant]
     Active Substance: TELMISARTAN
  9. MYRBETRIQ [Concomitant]
     Active Substance: MIRABEGRON
  10. VITAMIN D NOS [Concomitant]
     Active Substance: VITAMIN D NOS
  11. GLUTAMINE [LEVOGLUTAMIDE] [Concomitant]
  12. GLUTAMINE [LEVOGLUTAMIDE] [Concomitant]
  13. CYANOCOBALAMIN [Concomitant]
     Active Substance: CYANOCOBALAMIN
  14. MELATONIN [Concomitant]
     Active Substance: MELATONIN
     Indication: Insomnia
  15. IBUPROFEN [Concomitant]
     Active Substance: IBUPROFEN
     Indication: Pain
     Dosage: UNK, AS NEEDED
  16. ACETAMINOPHEN [Concomitant]
     Active Substance: ACETAMINOPHEN
  17. CYANOCOBALAMIN [Concomitant]
     Active Substance: CYANOCOBALAMIN
  18. IBUPROFEN [Concomitant]
     Active Substance: IBUPROFEN
     Indication: Pain
  19. LIPIDIL [Concomitant]
     Active Substance: FENOFIBRATE
  20. MELATONIN [Concomitant]
     Active Substance: MELATONIN
     Indication: Insomnia
  21. MICARDIS [Concomitant]
     Active Substance: TELMISARTAN
  22. MYRBETRIQ [Concomitant]
     Active Substance: MIRABEGRON
  23. PANTOPRAZOLE MAGNESIUM [Concomitant]
     Active Substance: PANTOPRAZOLE MAGNESIUM
     Route: 065
  24. VITAMIN D NOS [Concomitant]
     Active Substance: VITAMIN D NOS

REACTIONS (2)
  - Crohn^s disease [Not Recovered/Not Resolved]
  - Product substitution issue [Not Recovered/Not Resolved]
